FAERS Safety Report 18355585 (Version 7)
Quarter: 2021Q1

REPORT INFORMATION
  Report Type: Spontaneous
  Country: US (occurrence: US)
  Receive Date: 20201007
  Receipt Date: 20210330
  Transmission Date: 20210419
  Serious: Yes (Other)
  Sender: FDA-Public Use
  Company Number: US-GLAXOSMITHKLINE-US2020AMR197982

PATIENT
  Sex: Female

DRUGS (5)
  1. ZEJULA [Suspect]
     Active Substance: NIRAPARIB
     Dosage: 100 MG, QD
  2. ZEJULA [Suspect]
     Active Substance: NIRAPARIB
     Indication: OVARIAN CANCER
     Dosage: 200 MG, QD
     Route: 048
     Dates: start: 20200920
  3. ZEJULA [Suspect]
     Active Substance: NIRAPARIB
     Dosage: 100 MG, QD
  4. ZEJULA [Suspect]
     Active Substance: NIRAPARIB
     Dosage: 100 MG, QD
     Dates: start: 20201010
  5. ZEJULA [Suspect]
     Active Substance: NIRAPARIB
     Dosage: 100 MG, QD

REACTIONS (19)
  - Nausea [Unknown]
  - White blood cell count decreased [Not Recovered/Not Resolved]
  - Haemoglobin decreased [Unknown]
  - Dizziness [Recovering/Resolving]
  - Temporomandibular joint syndrome [Unknown]
  - Blood pressure increased [Recovering/Resolving]
  - Metastases to spleen [Unknown]
  - Red blood cell count decreased [Not Recovered/Not Resolved]
  - Vomiting [Recovering/Resolving]
  - Heart rate increased [Not Recovered/Not Resolved]
  - Carbohydrate antigen 125 increased [Unknown]
  - Back pain [Unknown]
  - Ureteral disorder [Unknown]
  - Metastases to liver [Unknown]
  - Pain in jaw [Unknown]
  - Nephritis [Unknown]
  - Platelet count decreased [Recovered/Resolved]
  - Ear pain [Unknown]
  - Headache [Recovering/Resolving]
